FAERS Safety Report 19816096 (Version 2)
Quarter: 2021Q3

REPORT INFORMATION
  Report Type: Spontaneous
  Country: JP (occurrence: JP)
  Receive Date: 20210909
  Receipt Date: 20210911
  Transmission Date: 20211014
  Serious: Yes (Hospitalization)
  Sender: FDA-Public Use
  Company Number: JP-PERRIGO-21JP012339

PATIENT
  Age: 21 Year
  Sex: Female

DRUGS (2)
  1. ALLERGY [Suspect]
     Active Substance: UNSPECIFIED INGREDIENT
     Indication: SUICIDE ATTEMPT
     Dosage: 900 MG, SINGLE
     Route: 048
  2. ALLERGY [Suspect]
     Active Substance: UNSPECIFIED INGREDIENT
     Indication: INTENTIONAL OVERDOSE

REACTIONS (2)
  - Overdose [Recovered/Resolved]
  - Depressed level of consciousness [Recovered/Resolved]
